FAERS Safety Report 6706988-8 (Version None)
Quarter: 2010Q2

REPORT INFORMATION
  Report Type: 
  Country: None (occurrence: None)
  Receive Date: 20100503
  Receipt Date: 20100422
  Transmission Date: 20101027
  Serious: Yes (Hospitalization)
  Sender: FDA-Public Use
  Company Number: US-WYE-H14788410

PATIENT
  Age: 58 Year
  Sex: Female

DRUGS (2)
  1. TORISEL [Suspect]
     Indication: CARCINOID TUMOUR OF THE PANCREAS
     Dosage: 25MG ON DAYS 1, 8, 15 AND 22
     Route: 042
     Dates: start: 20091222, end: 20100323
  2. BEVACIZUMAB [Suspect]
     Indication: CARCINOID TUMOUR OF THE PANCREAS
     Dosage: 10MG/KG OVER 30-90 MINUTES ON DAYS 1 AND 15
     Route: 042
     Dates: start: 20091222, end: 20100316

REACTIONS (2)
  - LEFT VENTRICULAR DYSFUNCTION [None]
  - PNEUMONITIS [None]
